FAERS Safety Report 18218686 (Version 3)
Quarter: 2020Q3

REPORT INFORMATION
  Report Type: Report from Study
  Country: ES (occurrence: ES)
  Receive Date: 20200901
  Receipt Date: 20200915
  Transmission Date: 20201103
  Serious: Yes (Hospitalization, Other)
  Sender: FDA-Public Use
  Company Number: ES-PFIZER INC-2020331188

PATIENT
  Age: 60 Year
  Sex: Female
  Weight: 57 kg

DRUGS (10)
  1. MIRAPEXIN [Concomitant]
     Active Substance: PRAMIPEXOLE
     Indication: PARKINSON^S DISEASE
     Dosage: 0.36 MG, FREQ:12 H;
     Route: 048
  2. DUODOPA [Suspect]
     Active Substance: CARBIDOPA\LEVODOPA
     Indication: PARKINSON^S DISEASE
     Dosage: UNK
     Route: 050
     Dates: start: 20200623, end: 20200805
  3. MOTILIUM [Concomitant]
     Active Substance: DOMPERIDONE
     Dosage: 10 UNK, FREQ:8 H;1MG/200ML
     Route: 048
  4. DUODOPA [Suspect]
     Active Substance: CARBIDOPA\LEVODOPA
     Dosage: CONTINUOUS DOSE 2 ML/H
     Dates: start: 202008, end: 202008
  5. DUODOPA [Suspect]
     Active Substance: CARBIDOPA\LEVODOPA
     Dosage: CONTINUOUS DOSE 2.3 ML/H
     Dates: start: 202008
  6. CLEXANE [Concomitant]
     Active Substance: ENOXAPARIN SODIUM
     Dosage: 40 MG, 1X/DAY, FREQ:24 H;
     Route: 058
  7. ASTONIN [CYPROHEPTADINE HYDROCHLORIDE] [Concomitant]
     Dosage: 0.1 MG, FREQ:8 H;
     Route: 048
  8. SINEMET [Concomitant]
     Active Substance: CARBIDOPA\LEVODOPA
     Indication: PARKINSON^S DISEASE
     Dosage: 200 MG, RETARD50/200 MG 1 AT NIGHT
     Route: 048
  9. FLUCONAZOLE. [Suspect]
     Active Substance: FLUCONAZOLE
     Dosage: UNK
     Route: 065
  10. ORFIDAL [Concomitant]
     Active Substance: LORAZEPAM
     Dosage: 1 MG, 1X/DAY, FREQ:24 H;
     Route: 048

REACTIONS (16)
  - Candida test positive [Recovered/Resolved]
  - Stoma site abscess [Recovering/Resolving]
  - Urinary tract infection [Recovering/Resolving]
  - Stoma site erythema [Recovering/Resolving]
  - On and off phenomenon [Recovering/Resolving]
  - Cardiac failure congestive [Unknown]
  - Drug resistance [Unknown]
  - Stoma site pain [Recovering/Resolving]
  - Stoma site extravasation [Recovering/Resolving]
  - Stoma site discharge [Recovering/Resolving]
  - Stoma site infection [Recovering/Resolving]
  - Candida infection [Not Recovered/Not Resolved]
  - Stoma site candida [Unknown]
  - Vomiting [Recovered/Resolved]
  - Dyskinesia [Recovered/Resolved]
  - Fatigue [Unknown]

NARRATIVE: CASE EVENT DATE: 2020
